FAERS Safety Report 9807464 (Version 3)
Quarter: 2014Q1

REPORT INFORMATION
  Report Type: Report from Study
  Country: JP (occurrence: JP)
  Receive Date: 20140110
  Receipt Date: 20140205
  Transmission Date: 20141002
  Serious: Yes (Hospitalization)
  Sender: FDA-Public Use
  Company Number: JP-ROCHE-1327844

PATIENT
  Age: 69 Year
  Sex: Male
  Weight: 47 kg

DRUGS (16)
  1. TRASTUZUMAB [Suspect]
     Indication: HER-2 POSITIVE GASTRIC CANCER
     Dosage: LOADING DOSE
     Route: 042
     Dates: start: 20131030
  2. TRASTUZUMAB [Suspect]
     Dosage: DATE OF MOST RECENT DOSE PRIOR TO SAE: 25/DEC/2013, MAINTAINCE DOSE
     Route: 042
  3. CAPECITABINE [Suspect]
     Indication: HER-2 POSITIVE GASTRIC CANCER
     Route: 048
     Dates: start: 20131030, end: 20131229
  4. CAPECITABINE [Suspect]
     Route: 048
     Dates: start: 20140101
  5. CISPLATIN [Suspect]
     Indication: HER-2 POSITIVE GASTRIC CANCER
     Dosage: DATE OF MOST RECENT DOSE: 25/DEC/2013
     Route: 042
     Dates: start: 20131030
  6. MUCOSOLVAN [Concomitant]
     Indication: BRONCHITIS
     Route: 048
  7. HARNAL D [Concomitant]
     Route: 048
     Dates: start: 20130910
  8. TAKEPRON OD [Concomitant]
     Indication: GASTRIC HAEMORRHAGE
     Route: 048
  9. MEDICON [Concomitant]
     Indication: BRONCHITIS
     Route: 048
  10. RACOL-NF [Concomitant]
     Indication: DECREASED APPETITE
     Route: 048
     Dates: start: 20131112
  11. DECADRON [Concomitant]
     Indication: NAUSEA
     Route: 048
     Dates: start: 20131128, end: 20131130
  12. DECADRON [Concomitant]
     Indication: NAUSEA
     Route: 048
     Dates: start: 20131226, end: 20131229
  13. EMEND [Concomitant]
     Indication: NAUSEA
     Route: 048
     Dates: start: 20131225, end: 20131225
  14. EMEND [Concomitant]
     Indication: NAUSEA
     Route: 048
     Dates: start: 20131226, end: 20131227
  15. NEU-UP [Concomitant]
     Indication: NEUTROPENIA
     Route: 058
     Dates: start: 20131217, end: 20131220
  16. PERTUZUMAB [Suspect]
     Indication: HER-2 POSITIVE GASTRIC CANCER
     Dosage: DATE OF MOST RECENT DOSE PRIOR TO SAE: 25/DEC/2013
     Route: 042
     Dates: start: 20131030

REACTIONS (1)
  - Presyncope [Recovered/Resolved]
